FAERS Safety Report 4403925-6 (Version None)
Quarter: 2004Q3

REPORT INFORMATION
  Report Type: 
  Country: None (occurrence: None)
  Receive Date: 20040719
  Receipt Date: 20040706
  Transmission Date: 20050211
  Serious: Yes (Hospitalization)
  Sender: FDA-Public Use
  Company Number: 2004-BP--05546YA(0)

PATIENT
  Age: 75 Year
  Sex: Male

DRUGS (6)
  1. OMIX (TAMSULOSIN HYDROCHLORIDE) (TAMSULOSIN) [Suspect]
     Dosage: 0.4 MG PO
     Route: 048
     Dates: end: 20040313
  2. MODOPAR (MADOPAR) [Suspect]
     Dosage: 375 MG PO
     Route: 048
  3. STILNOX [Suspect]
     Dates: end: 20040313
  4. CEFUROXIME AXETIL [Suspect]
     Dosage: 500 MG
     Dates: start: 20040223, end: 20040308
  5. ZOCOR [Suspect]
     Route: 048
     Dates: end: 20040313
  6. LOXAPINE SUCCINATE [Suspect]
     Dosage: 6 DF PO
     Route: 048
     Dates: end: 20040313

REACTIONS (1)
  - HEPATITIS [None]
